FAERS Safety Report 9748937 (Version 2)
Quarter: 2014Q1

REPORT INFORMATION
  Report Type: Report from Study
  Country: US (occurrence: US)
  Receive Date: 20131212
  Receipt Date: 20140220
  Transmission Date: 20141002
  Serious: Yes (Death, Hospitalization, Other)
  Sender: FDA-Public Use
  Company Number: US-ASTELLAS-2013US012955

PATIENT
  Age: 74 Year
  Sex: Female

DRUGS (11)
  1. ERLOTINIB TABLET [Suspect]
     Indication: LUNG ADENOCARCINOMA METASTATIC
     Dosage: 150 MG, UID/QD
     Route: 065
  2. VALIUM /00017001/ [Suspect]
     Indication: ANXIETY
     Dosage: UNK
     Route: 065
  3. XARELTO [Concomitant]
     Indication: PRODUCT USED FOR UNKNOWN INDICATION
     Dosage: 20 MG, UID/QD
     Route: 065
  4. AMIODARONE [Concomitant]
     Indication: PRODUCT USED FOR UNKNOWN INDICATION
     Dosage: 200 MG, UID/QD
     Route: 065
  5. ATENOLOL [Concomitant]
     Indication: PRODUCT USED FOR UNKNOWN INDICATION
     Dosage: 50 MG, UID/QD
     Route: 065
  6. CITALOPRAM [Concomitant]
     Indication: PRODUCT USED FOR UNKNOWN INDICATION
     Dosage: 30 MG, UID/QD
     Route: 065
  7. MARINOL                            /00897601/ [Concomitant]
     Indication: PRODUCT USED FOR UNKNOWN INDICATION
     Dosage: 2.5 MG, Q12 HOURS
     Route: 065
  8. DYAZIDE [Concomitant]
     Indication: PRODUCT USED FOR UNKNOWN INDICATION
     Dosage: 1 DF, UID/QD
     Route: 065
  9. LEVAQUIN [Concomitant]
     Indication: URINARY TRACT INFECTION
     Dosage: 500 MG, UID/QD
     Route: 065
  10. SINGULAIR [Concomitant]
     Indication: PRODUCT USED FOR UNKNOWN INDICATION
     Dosage: 10 MG, UID/QD
     Route: 065
  11. COUMADIN                           /00014802/ [Concomitant]
     Indication: PRODUCT USED FOR UNKNOWN INDICATION
     Dosage: UNK
     Route: 065

REACTIONS (18)
  - Ecchymosis [Unknown]
  - Lymphadenopathy [Unknown]
  - Lymphadenopathy [Unknown]
  - Laceration [Unknown]
  - Conjunctival pallor [Unknown]
  - Rash [Unknown]
  - Dry skin [Unknown]
  - Death [Fatal]
  - Laboratory test abnormal [Unknown]
  - Neutropenia [Unknown]
  - Thrombocytopenia [Unknown]
  - Pericardial effusion [Unknown]
  - Pericardial effusion malignant [Unknown]
  - Pleural effusion [Unknown]
  - Atelectasis [Unknown]
  - Neoplasm [Unknown]
  - Atrial fibrillation [Unknown]
  - Thrombosis [Unknown]
